FAERS Safety Report 10028162 (Version 1)
Quarter: 2014Q1

REPORT INFORMATION
  Report Type: Report from Study
  Country: US (occurrence: US)
  Receive Date: 20140321
  Receipt Date: 20140321
  Transmission Date: 20141002
  Serious: Yes (Other)
  Sender: FDA-Public Use
  Company Number: US-ABBVIE-14P-163-1212564-00

PATIENT
  Age: 55 Year
  Sex: Male
  Weight: 100 kg

DRUGS (10)
  1. LUPRON DEPOT [Suspect]
     Indication: PROSTATE CANCER
     Dates: start: 20080808, end: 201312
  2. LANTUS [Concomitant]
     Indication: DIABETES MELLITUS
     Dates: end: 201403
  3. METFORMIN HYDROCHLORIDE [Concomitant]
     Indication: DIABETES MELLITUS
     Dates: end: 201403
  4. CRESTOR [Concomitant]
     Indication: PRODUCT USED FOR UNKNOWN INDICATION
     Dates: end: 201403
  5. ATENOLOL [Concomitant]
     Indication: PRODUCT USED FOR UNKNOWN INDICATION
     Dates: end: 201403
  6. LISINOPRIL [Concomitant]
     Indication: PRODUCT USED FOR UNKNOWN INDICATION
     Dates: end: 201403
  7. VITAMIN D [Concomitant]
     Indication: PRODUCT USED FOR UNKNOWN INDICATION
     Dates: end: 201403
  8. BICALUTAMIDE [Concomitant]
     Indication: PRODUCT USED FOR UNKNOWN INDICATION
     Dates: end: 201403
  9. DIOVAN [Concomitant]
     Indication: PRODUCT USED FOR UNKNOWN INDICATION
     Dates: end: 201403
  10. BISACODYL [Concomitant]
     Indication: CONSTIPATION
     Dates: end: 201403

REACTIONS (1)
  - Loss of consciousness [Not Recovered/Not Resolved]
